FAERS Safety Report 6504828-3 (Version None)
Quarter: 2009Q4

REPORT INFORMATION
  Report Type: 
  Country: None (occurrence: None)
  Receive Date: 20091218
  Receipt Date: 20091208
  Transmission Date: 20100525
  Serious: Yes (Other)
  Sender: FDA-Public Use
  Company Number: CA-JNJFOC-20090904910

PATIENT
  Sex: Female
  Weight: 75 kg

DRUGS (4)
  1. REMICADE [Suspect]
     Route: 042
     Dates: start: 20090901
  2. REMICADE [Suspect]
     Route: 042
     Dates: start: 20090901
  3. REMICADE [Suspect]
     Indication: CROHN'S DISEASE
     Route: 042
     Dates: start: 20090901
  4. IMURAN [Concomitant]
     Indication: CROHN'S DISEASE
     Route: 065

REACTIONS (9)
  - ABDOMINAL DISTENSION [None]
  - ARTHRALGIA [None]
  - HYPOAESTHESIA [None]
  - HYPOAESTHESIA FACIAL [None]
  - OEDEMA PERIPHERAL [None]
  - OROPHARYNGEAL PAIN [None]
  - PARAESTHESIA [None]
  - PRURITUS [None]
  - SWOLLEN TONGUE [None]
